FAERS Safety Report 5007894-X (Version None)
Quarter: 2006Q2

REPORT INFORMATION
  Report Type: 
  Country: None (occurrence: None)
  Receive Date: 20060518
  Receipt Date: 20060502
  Transmission Date: 20061013
  Serious: Yes (Other)
  Sender: FDA-Public Use
  Company Number: 8016992

PATIENT
  Sex: Female

DRUGS (1)
  1. METADATE CD [Suspect]
     Dosage: PO
     Route: 048

REACTIONS (3)
  - DIASTOLIC DYSFUNCTION [None]
  - VENTRICULAR DYSFUNCTION [None]
  - VENTRICULAR HYPERTROPHY [None]
